FAERS Safety Report 11913002 (Version 1)
Quarter: 2016Q1

REPORT INFORMATION
  Report Type: Report from Study
  Country: DE (occurrence: DE)
  Receive Date: 20160113
  Receipt Date: 20160113
  Transmission Date: 20160526
  Serious: Yes (Other)
  Sender: FDA-Public Use
  Company Number: DE-ROCHE-1693977

PATIENT
  Age: 60 Year
  Sex: Male

DRUGS (2)
  1. BEVACIZUMAB [Suspect]
     Active Substance: BEVACIZUMAB
     Indication: COLON CANCER METASTATIC
  2. BEVACIZUMAB [Suspect]
     Active Substance: BEVACIZUMAB
     Indication: METASTASES TO CENTRAL NERVOUS SYSTEM
     Route: 042

REACTIONS (2)
  - Diarrhoea [Unknown]
  - Acute kidney injury [Recovered/Resolved]
